FAERS Safety Report 7045767-1 (Version None)
Quarter: 2010Q4

REPORT INFORMATION
  Report Type: 
  Country: None (occurrence: None)
  Receive Date: 20101014
  Receipt Date: 20101007
  Transmission Date: 20110411
  Serious: Yes (Hospitalization)
  Sender: FDA-Public Use
  Company Number: JP-SANOFI-AVENTIS-2010SA061862

PATIENT
  Age: 72 Year
  Sex: Male
  Weight: 43.2 kg

DRUGS (19)
  1. PLAVIX [Suspect]
     Indication: ANGINA UNSTABLE
     Route: 048
     Dates: start: 20080623, end: 20080623
  2. PLAVIX [Suspect]
     Route: 048
     Dates: start: 20080624, end: 20090105
  3. PLAVIX [Suspect]
     Route: 048
     Dates: start: 20090116, end: 20090218
  4. ASPIRIN [Suspect]
     Indication: ANGINA UNSTABLE
     Route: 048
     Dates: start: 20080623
  5. DORNER [Suspect]
     Indication: ANGINA UNSTABLE
     Route: 048
     Dates: end: 20090108
  6. MAINTATE [Concomitant]
     Indication: ANGINA UNSTABLE
     Route: 048
     Dates: end: 20090218
  7. TAKEPRON [Concomitant]
     Route: 048
     Dates: end: 20081123
  8. DOXAZOSIN MESYLATE [Concomitant]
     Route: 048
     Dates: end: 20090108
  9. OLMETEC [Concomitant]
     Route: 048
     Dates: end: 20081223
  10. OLMETEC [Concomitant]
     Route: 048
     Dates: start: 20090106, end: 20090106
  11. OLMETEC [Concomitant]
     Route: 048
     Dates: start: 20090107
  12. LASIX [Concomitant]
     Route: 048
  13. SIGMART [Concomitant]
     Indication: ANGINA UNSTABLE
     Route: 048
  14. ADALAT CC [Concomitant]
     Indication: ANGINA UNSTABLE
     Route: 048
  15. AMLODIPINE BESYLATE [Concomitant]
     Route: 048
  16. ISOSORBIDE MONONITRATE [Concomitant]
     Route: 048
     Dates: start: 20081128
  17. ALOSENN [Concomitant]
     Route: 048
     Dates: start: 20081128, end: 20090218
  18. AZULENE SODIUM SULFONATE [Concomitant]
     Indication: PROPHYLAXIS
     Route: 048
     Dates: start: 20081128, end: 20090218
  19. FRANDOL [Concomitant]
     Indication: ANGINA UNSTABLE
     Route: 062
     Dates: start: 20080626

REACTIONS (3)
  - ANGINA PECTORIS [None]
  - GASTRIC HAEMORRHAGE [None]
  - SMALL INTESTINAL HAEMORRHAGE [None]
